FAERS Safety Report 6108444-7 (Version None)
Quarter: 2009Q1

REPORT INFORMATION
  Report Type: 
  Country: None (occurrence: None)
  Receive Date: 20090309
  Receipt Date: 20090302
  Transmission Date: 20090719
  Serious: Yes (Other)
  Sender: FDA-Public Use
  Company Number: ES-B.I. PHARMACEUTICALS,INC./RIDGEFIELD-2009-ES-00031ES

PATIENT
  Age: 41 Year
  Sex: Female

DRUGS (2)
  1. MOVALIS 15MG [Suspect]
     Indication: BACK PAIN
     Dosage: 15MG
     Route: 048
     Dates: start: 20080917, end: 20081205
  2. EFFERALGAN [Concomitant]
     Indication: BACK PAIN
     Route: 048
     Dates: start: 20080725

REACTIONS (2)
  - TACHYCARDIA [None]
  - THROMBOPHLEBITIS [None]
